FAERS Safety Report 6003676-0 (Version None)
Quarter: 2008Q4

REPORT INFORMATION
  Report Type: 
  Country: None (occurrence: None)
  Receive Date: 20081216
  Receipt Date: 20080714
  Transmission Date: 20090506
  Serious: No
  Sender: FDA-Public Use
  Company Number: US-AMGEN-KDL294408

PATIENT
  Sex: Female

DRUGS (12)
  1. ARANESP [Suspect]
     Indication: RENAL FAILURE CHRONIC
     Dates: start: 20080601
  2. DOXAZOSIN MESYLATE [Concomitant]
  3. FUROSEMIDE [Concomitant]
  4. ASPIRIN [Concomitant]
  5. FOLIC ACID [Concomitant]
  6. PANTOPRAZOLE SODIUM [Concomitant]
  7. ALLOPURINOL [Concomitant]
  8. SIMVASTATIN [Concomitant]
  9. DIOVAN [Concomitant]
  10. CARTIA XT [Concomitant]
  11. LABETALOL HCL [Concomitant]
     Route: 048
  12. ARIMIDEX [Concomitant]

REACTIONS (1)
  - GASTROENTERITIS [None]
